FAERS Safety Report 11654867 (Version 1)
Quarter: 2015Q4

REPORT INFORMATION
  Report Type: Spontaneous
  Country: FR (occurrence: FR)
  Receive Date: 20151023
  Receipt Date: 20151023
  Transmission Date: 20160304
  Serious: Yes (Hospitalization, Other)
  Sender: FDA-Public Use
  Company Number: FR-ACTELION-A-CH2015-125729

PATIENT
  Age: 62 Year
  Sex: Female
  Weight: 63 kg

DRUGS (17)
  1. REVATIO [Concomitant]
     Active Substance: SILDENAFIL CITRATE
     Dosage: 20 MG, TID
     Route: 048
  2. DOLIPRANE [Concomitant]
     Active Substance: ACETAMINOPHEN
     Route: 048
  3. AMOXICILLIN. [Suspect]
     Active Substance: AMOXICILLIN
     Indication: ODYNOPHAGIA
     Dosage: 1 G, TID
     Route: 048
     Dates: start: 20150910, end: 20150917
  4. CORTANCYL [Concomitant]
     Active Substance: PREDNISONE
     Dosage: 5 MG, QD
     Route: 048
  5. GAVISCON [Concomitant]
     Active Substance: ALUMINUM HYDROXIDE\MAGNESIUM CARBONATE
     Dosage: UNK, PRN
     Route: 048
  6. DIFFU-K [Concomitant]
     Active Substance: POTASSIUM CHLORIDE
     Dosage: UNK
  7. TRACLEER [Suspect]
     Active Substance: BOSENTAN
     Indication: PULMONARY ARTERIAL HYPERTENSION
     Dosage: 125 MG, BID
     Route: 048
     Dates: start: 201206, end: 20150603
  8. TRACLEER [Suspect]
     Active Substance: BOSENTAN
     Dosage: 62.5 MG, BID
     Route: 048
     Dates: start: 20150604, end: 20150607
  9. LEVOTHYROX [Concomitant]
     Active Substance: LEVOTHYROXINE
     Dosage: 62.5 ?G, QD
     Route: 048
  10. LEXOMIL [Concomitant]
     Active Substance: BROMAZEPAM
     Route: 048
  11. FOLIC ACID. [Concomitant]
     Active Substance: FOLIC ACID
     Dosage: 5 MG, UNK
     Route: 048
  12. TRACLEER [Suspect]
     Active Substance: BOSENTAN
     Dosage: 125 MG, BID
     Route: 048
     Dates: start: 20150608, end: 20150925
  13. METOJECT [Suspect]
     Active Substance: METHOTREXATE SODIUM
     Indication: CONNECTIVE TISSUE DISORDER
     Dosage: 20 MG, Q1WEEK
     Route: 058
     Dates: start: 20150613, end: 20150925
  14. STILNOX [Concomitant]
     Active Substance: ZOLPIDEM TARTRATE
     Dosage: 10 MG, QD
     Route: 048
  15. ADCIRCA [Concomitant]
     Active Substance: TADALAFIL
     Dosage: UNK
     Dates: start: 201206
  16. INEXIUM [Concomitant]
     Active Substance: ESOMEPRAZOLE
     Dosage: UNK
     Route: 048
     Dates: start: 20150606
  17. LASILIX [Concomitant]
     Active Substance: FUROSEMIDE
     Dosage: 40 MG, QD
     Route: 048

REACTIONS (22)
  - Infectious colitis [Recovering/Resolving]
  - Abdominal pain [Recovering/Resolving]
  - Gamma-glutamyltransferase increased [Recovering/Resolving]
  - Oropharyngeal candidiasis [Unknown]
  - Concomitant disease progression [Unknown]
  - Hepatitis cholestatic [Recovering/Resolving]
  - Septic shock [Unknown]
  - Diarrhoea [Recovering/Resolving]
  - Aspartate aminotransferase increased [Recovering/Resolving]
  - Myalgia [Unknown]
  - Immune-mediated necrotising myopathy [Unknown]
  - Alanine aminotransferase increased [Recovering/Resolving]
  - Hepatotoxicity [Unknown]
  - Blood creatine phosphokinase increased [Unknown]
  - Jaundice [Recovering/Resolving]
  - Right ventricular failure [Unknown]
  - Pyrexia [Recovering/Resolving]
  - Connective tissue disorder [Unknown]
  - General physical health deterioration [Recovering/Resolving]
  - Odynophagia [Unknown]
  - Blood bilirubin increased [Recovering/Resolving]
  - Blood alkaline phosphatase increased [Recovering/Resolving]

NARRATIVE: CASE EVENT DATE: 201301
